FAERS Safety Report 9953856 (Version 1)
Quarter: 2014Q1

REPORT INFORMATION
  Report Type: Spontaneous
  Country: US (occurrence: US)
  Receive Date: 20140304
  Receipt Date: 20140304
  Transmission Date: 20141002
  Serious: Yes (Hospitalization)
  Sender: FDA-Public Use
  Company Number: US-ACTELION-A-US2014-95095

PATIENT
  Age: 71 Year
  Sex: Male

DRUGS (3)
  1. OPSUMIT [Suspect]
     Indication: PULMONARY ARTERIAL HYPERTENSION
     Dosage: 10 MG, UNK
     Route: 048
     Dates: start: 201311
  2. COUMADIN [Concomitant]
  3. SILDENAFIL [Concomitant]

REACTIONS (1)
  - Nephrolithiasis [Recovered/Resolved]
